FAERS Safety Report 4636546-0 (Version None)
Quarter: 2005Q2

REPORT INFORMATION
  Report Type: 
  Country: None (occurrence: None)
  Receive Date: 20050415
  Receipt Date: 20050404
  Transmission Date: 20051028
  Serious: Yes (Other)
  Sender: FDA-Public Use
  Company Number: JP-GLAXOSMITHKLINE-B0377642A

PATIENT
  Age: 44 Year
  Sex: Female

DRUGS (1)
  1. ZOVIRAX [Suspect]
     Route: 042

REACTIONS (2)
  - MENINGITIS HERPES [None]
  - NAUSEA [None]
